FAERS Safety Report 16306668 (Version 2)
Quarter: 2021Q1

REPORT INFORMATION
  Report Type: Spontaneous
  Country: US (occurrence: US)
  Receive Date: 20190513
  Receipt Date: 20210316
  Transmission Date: 20210419
  Serious: Yes (Hospitalization, Other)
  Sender: FDA-Public Use
  Company Number: US-ASTRAZENECA-2019SE64157

PATIENT
  Age: 46 Year
  Sex: Female
  Weight: 78.5 kg

DRUGS (95)
  1. EXCEDRIN [Concomitant]
     Active Substance: ACETAMINOPHEN\ASPIRIN\CAFFEINE
     Indication: PAIN
  2. CALCIUM [Concomitant]
     Active Substance: CALCIUM
     Indication: BONE DISORDER
  3. ZOLPIDEM TARTRATE. [Concomitant]
     Active Substance: ZOLPIDEM TARTRATE
  4. MOVIPREP [Concomitant]
     Active Substance: ASCORBIC ACID\POLYETHYLENE GLYCOL 3350\POTASSIUM CHLORIDE\SODIUM ASCORBATE\SODIUM CHLORIDE\SODIUM SULFATE
  5. AMOXICILLIN. [Concomitant]
     Active Substance: AMOXICILLIN
  6. SULFAMETHOXAZOLE?TMP [Concomitant]
     Active Substance: SULFAMETHOXAZOLE\TRIMETHOPRIM
  7. MINOCYCLINE [Concomitant]
     Active Substance: MINOCYCLINE HYDROCHLORIDE
  8. VITAMIN B12 [Concomitant]
     Active Substance: CYANOCOBALAMIN
  9. ACETAMINOPHEN/ PHENYLEPHR [Concomitant]
  10. FEXOFENADINE [Concomitant]
     Active Substance: FEXOFENADINE HYDROCHLORIDE
  11. PREDNISONE. [Concomitant]
     Active Substance: PREDNISONE
  12. VANCOMYCIN [Concomitant]
     Active Substance: VANCOMYCIN
  13. PREVIDENT [Concomitant]
     Active Substance: SODIUM FLUORIDE
  14. TRIMOX [Concomitant]
     Active Substance: AMOXICILLIN
  15. ZITHROMAX [Concomitant]
     Active Substance: AZITHROMYCIN DIHYDRATE
  16. VIGAMOX [Concomitant]
     Active Substance: MOXIFLOXACIN HYDROCHLORIDE
  17. VIOXX [Concomitant]
     Active Substance: ROFECOXIB
     Indication: PAIN
  18. IRON [Concomitant]
     Active Substance: IRON
     Indication: ANAEMIA
  19. HYDROCODONE?ACETAMINOPHEN [Concomitant]
     Active Substance: ACETAMINOPHEN\HYDROCODONE
  20. NITROFURANTOIN. [Concomitant]
     Active Substance: NITROFURANTOIN
  21. TIZANIDINE HYDROCHLORIDE. [Concomitant]
     Active Substance: TIZANIDINE HYDROCHLORIDE
  22. MICONAZOLE. [Concomitant]
     Active Substance: MICONAZOLE
  23. DULOXETINE. [Concomitant]
     Active Substance: DULOXETINE
  24. ACETAMINOPHEN AND CODEINE [Concomitant]
     Active Substance: ACETAMINOPHEN\CODEINE PHOSPHATE
  25. XYLOCAINE [Concomitant]
     Active Substance: LIDOCAINE HYDROCHLORIDE
  26. CITALOPRAM [Concomitant]
     Active Substance: CITALOPRAM HYDROBROMIDE
  27. CIPROFLOXACIN. [Concomitant]
     Active Substance: CIPROFLOXACIN
  28. BUPROPION HYDROCHLORIDE. [Concomitant]
     Active Substance: BUPROPION HYDROCHLORIDE
  29. LITHIUM CARBONATE. [Concomitant]
     Active Substance: LITHIUM CARBONATE
  30. OLANZAPINE. [Concomitant]
     Active Substance: OLANZAPINE
  31. BENZTROPINE. [Concomitant]
     Active Substance: BENZTROPINE
  32. MULTIVITAMINS [Concomitant]
     Active Substance: VITAMINS
  33. RESTASIS [Concomitant]
     Active Substance: CYCLOSPORINE
  34. PRILOSEC [Suspect]
     Active Substance: OMEPRAZOLE MAGNESIUM
     Indication: GASTROOESOPHAGEAL REFLUX DISEASE
     Dosage: GENERIC
     Route: 065
  35. ZYRTEC [Concomitant]
     Active Substance: CETIRIZINE HYDROCHLORIDE
     Indication: HYPERSENSITIVITY
  36. EVOXAC [Concomitant]
     Active Substance: CEVIMELINE HYDROCHLORIDE
     Indication: DRY MOUTH
  37. RISPERIDONE. [Concomitant]
     Active Substance: RISPERIDONE
  38. DIVALPROEX [Concomitant]
     Active Substance: DIVALPROEX SODIUM
  39. VITAMIN C [Concomitant]
     Active Substance: ASCORBIC ACID
  40. HYDROXYZINE HYDROCHLORIDE. [Concomitant]
     Active Substance: HYDROXYZINE HYDROCHLORIDE
  41. FENTANYL. [Concomitant]
     Active Substance: FENTANYL
  42. FLUARIX NOS [Concomitant]
     Active Substance: INFLUENZA VIRUS VACCINE
  43. TOPIRAMATE. [Concomitant]
     Active Substance: TOPIRAMATE
  44. CYCLOBENZAPRINE. [Concomitant]
     Active Substance: CYCLOBENZAPRINE
  45. PROPO?N/APAP [Concomitant]
  46. STRATTERA [Concomitant]
     Active Substance: ATOMOXETINE HYDROCHLORIDE
  47. LYRICA [Concomitant]
     Active Substance: PREGABALIN
  48. GLUCOSAMINE [Concomitant]
     Active Substance: GLUCOSAMINE
  49. DOXYCYCLINE HYCLATE. [Concomitant]
     Active Substance: DOXYCYCLINE HYCLATE
  50. OXYCODONE?ACETAMINOPHEN [Concomitant]
     Active Substance: ACETAMINOPHEN\OXYCODONE HYDROCHLORIDE
     Indication: ANALGESIC THERAPY
  51. QUETIAPINE FUMARATE. [Concomitant]
     Active Substance: QUETIAPINE FUMARATE
  52. VITAMIN D [Concomitant]
     Active Substance: VITAMIN D NOS
  53. BELSOMRA [Concomitant]
     Active Substance: SUVOREXANT
  54. SALAGEN [Concomitant]
     Active Substance: PILOCARPINE HYDROCHLORIDE
  55. ETODOLAC. [Concomitant]
     Active Substance: ETODOLAC
  56. LUNESTA [Concomitant]
     Active Substance: ESZOPICLONE
  57. BACLOFEN. [Concomitant]
     Active Substance: BACLOFEN
  58. PRILOSEC OTC [Suspect]
     Active Substance: OMEPRAZOLE MAGNESIUM
     Indication: GASTROOESOPHAGEAL REFLUX DISEASE
     Route: 048
     Dates: start: 2003, end: 2018
  59. LEVOTHYROXIN [Concomitant]
     Active Substance: LEVOTHYROXINE
     Indication: THYROID DISORDER
  60. RANITIDINE. [Concomitant]
     Active Substance: RANITIDINE
  61. LAMOTRIGINE. [Concomitant]
     Active Substance: LAMOTRIGINE
  62. CHLORHEXIDINE [Concomitant]
     Active Substance: CHLORHEXIDINE
  63. HYDROXYCHLOROQUINE [Concomitant]
     Active Substance: HYDROXYCHLOROQUINE
  64. SULFACETAMIDE. [Concomitant]
     Active Substance: SULFACETAMIDE
  65. PHENOL. [Concomitant]
     Active Substance: PHENOL
  66. GENTAMICIN. [Concomitant]
     Active Substance: GENTAMICIN
  67. KLOR?CON [Concomitant]
     Active Substance: POTASSIUM CHLORIDE
  68. MORPHINE SULFATE. [Concomitant]
     Active Substance: MORPHINE SULFATE
  69. METHYLPREDNISOLONE. [Concomitant]
     Active Substance: METHYLPREDNISOLONE
  70. PREMPRO [Concomitant]
     Active Substance: ESTROGENS, CONJUGATED\MEDROXYPROGESTERONE ACETATE
  71. MIRAPEX [Concomitant]
     Active Substance: PRAMIPEXOLE DIHYDROCHLORIDE
  72. PENICILLIN VK [Concomitant]
     Active Substance: PENICILLIN V POTASSIUM
  73. NYSTOP [Concomitant]
     Active Substance: NYSTATIN
  74. TRAMADOL HYDROCHLORIDE. [Concomitant]
     Active Substance: TRAMADOL HYDROCHLORIDE
  75. IBUPROFEN. [Concomitant]
     Active Substance: IBUPROFEN
  76. CALCIUM CITRATE [Concomitant]
     Active Substance: CALCIUM CITRATE
  77. MIRTAZAPINE. [Concomitant]
     Active Substance: MIRTAZAPINE
  78. PROPRANOLOL [Concomitant]
     Active Substance: PROPRANOLOL HYDROCHLORIDE
  79. MUPIROCIN. [Concomitant]
     Active Substance: MUPIROCIN
  80. FLUTICASONE PROP [Concomitant]
     Active Substance: FLUTICASONE PROPIONATE
  81. PREDNISOLONE ACETATE. [Concomitant]
     Active Substance: PREDNISOLONE ACETATE
  82. LEXAPRO [Concomitant]
     Active Substance: ESCITALOPRAM OXALATE
  83. CODEINE [Concomitant]
     Active Substance: CODEINE
  84. PRILOSEC [Suspect]
     Active Substance: OMEPRAZOLE MAGNESIUM
     Indication: GASTROOESOPHAGEAL REFLUX DISEASE
     Route: 048
     Dates: start: 2000, end: 2018
  85. CLONAZEPAM. [Concomitant]
     Active Substance: CLONAZEPAM
     Indication: SEIZURE
  86. CELEBREX [Concomitant]
     Active Substance: CELECOXIB
  87. AMOX TR?K CLV [Concomitant]
     Active Substance: AMOXICILLIN\CLAVULANATE POTASSIUM
  88. OYSTER [Concomitant]
     Active Substance: OYSTER, UNSPECIFIED
  89. NARCAN [Concomitant]
     Active Substance: NALOXONE HYDROCHLORIDE
  90. METHYLPHENIDATE. [Concomitant]
     Active Substance: METHYLPHENIDATE
  91. SALINE [Concomitant]
     Active Substance: SODIUM CHLORIDE
  92. TOBRADEX [Concomitant]
     Active Substance: DEXAMETHASONE\TOBRAMYCIN
  93. BEXTRA [Concomitant]
     Active Substance: VALDECOXIB
  94. METHOCARBAM [Concomitant]
     Active Substance: METHOCARBAMOL
  95. EPINEPHRINE. [Concomitant]
     Active Substance: EPINEPHRINE

REACTIONS (3)
  - Acute kidney injury [Not Recovered/Not Resolved]
  - Gastrooesophageal reflux disease [Not Recovered/Not Resolved]
  - Chronic kidney disease [Unknown]

NARRATIVE: CASE EVENT DATE: 2005
